FAERS Safety Report 7519492-4 (Version None)
Quarter: 2011Q2

REPORT INFORMATION
  Report Type: 
  Country: None (occurrence: None)
  Receive Date: 20110602
  Receipt Date: 20110525
  Transmission Date: 20111010
  Serious: Yes (Disabling)
  Sender: FDA-Public Use
  Company Number: JP-MERCK-1105USA03969

PATIENT
  Age: 40 Year
  Sex: Male

DRUGS (3)
  1. AMLODIPINE [Concomitant]
     Dosage: DOSAGE IS UNCERTAIN DURING A DAY
     Route: 048
  2. ZETIA [Suspect]
     Indication: HYPERCHOLESTEROLAEMIA
     Route: 048
     Dates: start: 20110401, end: 20110501
  3. EPERISONE HYDROCHLORIDE [Concomitant]
     Indication: MUSCULOSKELETAL STIFFNESS
     Dosage: DAILY DOSE UNKNOWN
     Route: 048

REACTIONS (1)
  - HYPERKERATOSIS [None]
